FAERS Safety Report 10963121 (Version 1)
Quarter: 2015Q1

REPORT INFORMATION
  Report Type: Report from Study
  Country: US (occurrence: US)
  Receive Date: 20150327
  Receipt Date: 20150327
  Transmission Date: 20150721
  Serious: Yes (Hospitalization)
  Sender: FDA-Public Use
  Company Number: US-FRI-1000075476

PATIENT
  Age: 36 Year
  Sex: Female
  Weight: 51.7 kg

DRUGS (4)
  1. F2695 (DOUBLE-BLIND) [Suspect]
     Active Substance: LEVOMILNACIPRAN
     Indication: DEPRESSION
     Route: 048
     Dates: start: 20150106, end: 20150224
  2. MULTIVITAMIN [Concomitant]
     Active Substance: VITAMINS
     Indication: ROUTINE HEALTH MAINTENANCE
     Dosage: 1 DOSAGE FORM
     Route: 048
     Dates: start: 2014
  3. LEVOMILNACIPRAN EXTENDED-RELEASE CAP [Suspect]
     Active Substance: LEVOMILNACIPRAN
     Indication: DEPRESSION
     Route: 048
     Dates: start: 20150225
  4. METFORMIN [Concomitant]
     Active Substance: METFORMIN HYDROCHLORIDE
     Indication: DIABETES MELLITUS
     Dosage: 1000 MG
     Route: 048
     Dates: start: 20150115

REACTIONS (1)
  - Pelvic inflammatory disease [Recovered/Resolved with Sequelae]

NARRATIVE: CASE EVENT DATE: 20150316
